FAERS Safety Report 6673030-7 (Version None)
Quarter: 2010Q2

REPORT INFORMATION
  Report Type: 
  Country: None (occurrence: None)
  Receive Date: 20100408
  Receipt Date: 20100401
  Transmission Date: 20101027
  Serious: Yes (Hospitalization)
  Sender: FDA-Public Use
  Company Number: R0010215A

PATIENT
  Age: 78 Year
  Sex: Female

DRUGS (5)
  1. FLUARIX [Suspect]
     Route: 030
     Dates: start: 20090909, end: 20090909
  2. PANDEMIC VACCINE H1N1 3.75 MCG AS03 DRESDEN [Suspect]
     Route: 030
     Dates: start: 20091021, end: 20091021
  3. VACCINE PLACEBO [Suspect]
     Route: 030
     Dates: start: 20091111, end: 20091111
  4. CLINDAMYCIN [Suspect]
     Indication: TOOTH DISORDER
     Dosage: 600MG PER DAY
     Route: 048
  5. AMOXILLIN [Suspect]
     Indication: TOOTH DISORDER
     Dosage: 2000MG PER DAY
     Route: 048

REACTIONS (1)
  - ENTEROCOLITIS [None]
